FAERS Safety Report 8146438-0 (Version None)
Quarter: 2012Q1

REPORT INFORMATION
  Report Type: 
  Country: None (occurrence: None)
  Receive Date: 20120217
  Receipt Date: 20110523
  Transmission Date: 20120608
  Serious: No
  Sender: FDA-Public Use
  Company Number: US-ABBOTT-11P-163-0727827-00

PATIENT
  Sex: Female

DRUGS (4)
  1. TEGRETOL [Concomitant]
     Indication: CONVULSION
  2. PHENOBARBITAL TAB [Concomitant]
     Indication: CONVULSION
  3. ZIAC [Concomitant]
     Indication: BLOOD CHOLESTEROL INCREASED
  4. SIMCOR [Suspect]
     Indication: BLOOD CHOLESTEROL INCREASED
     Dosage: 500/20MG
     Dates: start: 20110509, end: 20110522

REACTIONS (2)
  - ERYTHEMA [None]
  - FEELING HOT [None]
